FAERS Safety Report 4502985-1 (Version None)
Quarter: 2004Q4

REPORT INFORMATION
  Report Type: 
  Country: None (occurrence: None)
  Receive Date: 20041116
  Receipt Date: 20041116
  Transmission Date: 20050328
  Serious: Yes (Death)
  Sender: FDA-Public Use
  Company Number: None

PATIENT
  Age: 27 Year
  Sex: Male
  Weight: 74.8435 kg

DRUGS (5)
  1. CLONAZEPAM [Suspect]
     Indication: ANXIETY
     Dosage: 3 TIME   DAY   INTRAVENOU
     Route: 042
     Dates: start: 20041108, end: 20041111
  2. CLONAZEPAM [Suspect]
     Indication: DEPRESSION
     Dosage: 3 TIME   DAY   INTRAVENOU
     Route: 042
     Dates: start: 20041108, end: 20041111
  3. LEXAPRO [Suspect]
     Indication: ANXIETY
     Dosage: ONCE   DAY   INTRAVENOU
     Route: 042
     Dates: start: 20040608, end: 20041111
  4. LEXAPRO [Suspect]
     Indication: DEPRESSION
     Dosage: ONCE   DAY   INTRAVENOU
     Route: 042
     Dates: start: 20040608, end: 20041111
  5. VERAPAMIL [Concomitant]

REACTIONS (2)
  - COMPLETED SUICIDE [None]
  - GUN SHOT WOUND [None]
